FAERS Safety Report 23668157 (Version 1)
Quarter: 2024Q1

REPORT INFORMATION
  Report Type: Spontaneous
  Country: US (occurrence: US)
  Receive Date: 20240325
  Receipt Date: 20240325
  Transmission Date: 20240409
  Serious: No
  Sender: FDA-Public Use
  Company Number: US-LEO Pharma-368832

PATIENT
  Age: 47 Year
  Sex: Female

DRUGS (1)
  1. ADBRY [Suspect]
     Active Substance: TRALOKINUMAB-LDRM
     Indication: Dermatitis atopic

REACTIONS (4)
  - Oral mucosal blistering [Unknown]
  - Heart rate irregular [Unknown]
  - Burning sensation [Unknown]
  - Contusion [Unknown]
